FAERS Safety Report 10408822 (Version 1)
Quarter: 2014Q3

REPORT INFORMATION
  Report Type: Spontaneous
  Country: FI (occurrence: FI)
  Receive Date: 20140826
  Receipt Date: 20140826
  Transmission Date: 20150326
  Serious: Yes (Death, Hospitalization, Other)
  Sender: FDA-Public Use
  Company Number: FI-ACCORD-025556

PATIENT
  Age: 60 Year
  Sex: Female

DRUGS (7)
  1. GRANISETRON [Concomitant]
     Active Substance: GRANISETRON
     Indication: ANTIEMETIC SUPPORTIVE CARE
     Dosage: DAILY DOSE: 3 MG
     Route: 042
     Dates: start: 20140409, end: 20140409
  2. FLUOROURACIL ACCORD [Suspect]
     Active Substance: FLUOROURACIL
     Indication: BREAST CANCER
     Dosage: DOSAGE FORM:SOLUTION?DAILY DOSE: 100 MG
     Route: 042
     Dates: start: 20140409
  3. SENDOXAN [Suspect]
     Active Substance: CYCLOPHOSPHAMIDE
     Indication: BREAST CANCER
     Dosage: DOSAGE FORM: SOLUTION?DAILY DOSE: 1000 MG
     Route: 042
     Dates: start: 20140409
  4. NEULASTA [Concomitant]
     Active Substance: PEGFILGRASTIM
     Indication: BREAST CANCER
  5. EPIRUBICINE ACTAVIS [Suspect]
     Active Substance: EPIRUBICIN
     Indication: BREAST CANCER
     Dosage: DOSAGE FORM : SOLUTION?DAILY DOSE: 50 MG
     Route: 042
     Dates: start: 20140409
  6. VINORELBINE [Suspect]
     Active Substance: VINORELBINE\VINORELBINE TARTRATE
     Indication: BREAST CANCER
     Dates: start: 201404
  7. ORADEXON [Concomitant]
     Active Substance: DEXAMETHASONE
     Indication: ANTIEMETIC SUPPORTIVE CARE
     Dosage: DAILY DOSE: 10 MG
     Route: 042
     Dates: start: 20140409, end: 20140409

REACTIONS (12)
  - Cough [None]
  - Bronchoalveolar lavage abnormal [None]
  - Aspergilloma [None]
  - Acute respiratory distress syndrome [Fatal]
  - Pyrexia [None]
  - Malaise [None]
  - Influenza A virus test positive [None]
  - Pulmonary alveolar haemorrhage [None]
  - Pulmonary haemorrhage [Unknown]
  - Vomiting [None]
  - Pulmonary toxicity [None]
  - Pulmonary congestion [None]

NARRATIVE: CASE EVENT DATE: 20140418
